FAERS Safety Report 18182400 (Version 2)
Quarter: 2021Q2

REPORT INFORMATION
  Report Type: Spontaneous
  Country: US (occurrence: US)
  Receive Date: 20200821
  Receipt Date: 20210628
  Transmission Date: 20210717
  Serious: No
  Sender: FDA-Public Use
  Company Number: US-HORIZON-DUE-0235-2020

PATIENT
  Sex: Female

DRUGS (1)
  1. DUEXIS [Suspect]
     Active Substance: FAMOTIDINE\IBUPROFEN
     Indication: BACK INJURY
     Dosage: THREE TIMES A DAY 3 SEPARATED DOSES
     Dates: end: 202007

REACTIONS (2)
  - Off label use [Recovered/Resolved]
  - Somnolence [Unknown]
